FAERS Safety Report 9390567 (Version 2)
Quarter: 2013Q3

REPORT INFORMATION
  Report Type: Spontaneous
  Country: DE (occurrence: DE)
  Receive Date: 20130709
  Receipt Date: 20130903
  Transmission Date: 20140515
  Serious: Yes (Other)
  Sender: FDA-Public Use
  Company Number: DE-JNJFOC-20130700389

PATIENT
  Age: 73 Year
  Sex: Male
  Weight: 78 kg

DRUGS (8)
  1. XARELTO [Suspect]
     Indication: CEREBROVASCULAR ACCIDENT PROPHYLAXIS
     Dosage: FOR 2 WEEKS
     Route: 048
  2. XARELTO [Suspect]
     Indication: CEREBROVASCULAR ACCIDENT PROPHYLAXIS
     Route: 048
     Dates: start: 201207
  3. XARELTO [Suspect]
     Indication: CEREBROVASCULAR ACCIDENT PROPHYLAXIS
     Route: 048
  4. XARELTO [Suspect]
     Indication: ATRIAL FIBRILLATION
     Route: 048
     Dates: start: 201207
  5. XARELTO [Suspect]
     Indication: ATRIAL FIBRILLATION
     Dosage: FOR 2 WEEKS
     Route: 048
  6. XARELTO [Suspect]
     Indication: ATRIAL FIBRILLATION
     Route: 048
  7. TAMBOCOR [Concomitant]
     Route: 065
     Dates: start: 201009
  8. BELOC ZOK [Concomitant]
     Route: 065
     Dates: start: 200808

REACTIONS (3)
  - Subclavian vein thrombosis [Recovered/Resolved]
  - Skin discolouration [Unknown]
  - Local swelling [Recovered/Resolved]
